FAERS Safety Report 17152447 (Version 3)
Quarter: 2020Q2

REPORT INFORMATION
  Report Type: Report from Study
  Country: CO (occurrence: CO)
  Receive Date: 20191213
  Receipt Date: 20200420
  Transmission Date: 20200713
  Serious: Yes (Death, Hospitalization, Other)
  Sender: FDA-Public Use
  Company Number: CO-ASTELLAS-2019US039097

PATIENT
  Age: 64 Year
  Sex: Male
  Weight: 64 kg

DRUGS (7)
  1. NIFEDIPINE. [Concomitant]
     Active Substance: NIFEDIPINE
     Indication: BLOOD PRESSURE MEASUREMENT
     Dosage: 30 MG IN THE MORNING AND 60 MG (2) AT NIGHT) (8 TO 10 YEARS AGO)
     Route: 048
  2. METOPROLOL. [Concomitant]
     Active Substance: METOPROLOL
     Indication: HEART RATE IRREGULAR
  3. ATORVASTATIN [Concomitant]
     Active Substance: ATORVASTATIN
     Indication: BLOOD CHOLESTEROL
     Dosage: 40 MG, ONCE DAILY (AT 2 YEARS AFTER TRANSPLANT)
     Route: 048
  4. CALCITRIOL. [Concomitant]
     Active Substance: CALCITRIOL
     Indication: BLOOD CALCIUM ABNORMAL
     Dosage: 0.25 MG, ONCE DAILY (23 YEARS AGO)
     Route: 048
  5. METOPROLOL. [Concomitant]
     Active Substance: METOPROLOL
     Indication: BLOOD PRESSURE MEASUREMENT
     Route: 048
     Dates: start: 20190909
  6. TACROLIMUS. [Suspect]
     Active Substance: TACROLIMUS
     Indication: RENAL TRANSPLANT
     Dosage: 4 MG, ONCE DAILY (1 CAPSULES OF 3 MG AND 1 CAPSULES OF 1 MG)
     Route: 048
     Dates: start: 20151020, end: 20191206
  7. MYCOPHENOLATE SODIUM [Concomitant]
     Active Substance: MYCOPHENOLATE SODIUM
     Indication: RENAL TRANSPLANT
     Dosage: 180 MG AND 320 MG EVERY 12 HOURS (16 OR 17 YEARS AGO)
     Route: 048

REACTIONS (13)
  - Cryptococcosis [Recovered/Resolved]
  - Death [Fatal]
  - Near drowning [Recovering/Resolving]
  - Lung disorder [Not Recovered/Not Resolved]
  - Depressed mood [Recovering/Resolving]
  - Asphyxia [Not Recovered/Not Resolved]
  - Blood creatinine increased [Recovering/Resolving]
  - Heart valve calcification [Not Recovered/Not Resolved]
  - Anaemia [Not Recovered/Not Resolved]
  - Oedema peripheral [Recovered/Resolved]
  - Pneumonia [Not Recovered/Not Resolved]
  - Haemoptysis [Recovering/Resolving]
  - Limb discomfort [Not Recovered/Not Resolved]

NARRATIVE: CASE EVENT DATE: 201909
